FAERS Safety Report 5601047-X (Version None)
Quarter: 2008Q1

REPORT INFORMATION
  Report Type: 
  Country: None (occurrence: None)
  Receive Date: 20080107
  Receipt Date: 20071029
  Transmission Date: 20080703
  Serious: Yes (Other)
  Sender: FDA-Public Use
  Company Number: 42274

PATIENT
  Age: 23 Year
  Sex: Female
  Weight: 74.8435 kg

DRUGS (1)
  1. OCTREOTIDE ACETATE [Suspect]
     Indication: ACROMEGALY
     Dates: start: 20070922

REACTIONS (2)
  - ALOPECIA [None]
  - URINARY TRACT INFECTION [None]
